FAERS Safety Report 4695244-8 (Version None)
Quarter: 2005Q2

REPORT INFORMATION
  Report Type: 
  Country: None (occurrence: None)
  Receive Date: 20050613
  Receipt Date: 20050311
  Transmission Date: 20051028
  Serious: No
  Sender: FDA-Public Use
  Company Number: 2005-00491

PATIENT
  Age: 72 Year
  Sex: Male
  Weight: 89.8 kg

DRUGS (7)
  1. VELCADE [Suspect]
     Indication: MULTIPLE MYELOMA
     Dosage: UNK, UNK, INTRAVENOUS
     Route: 042
     Dates: start: 20041129
  2. VELCADE [Suspect]
     Indication: MULTIPLE MYELOMA
     Dosage: UNK, UNK, INTRAVENOUS
     Route: 042
     Dates: start: 20050307
  3. ANTIHYPERTENSIVES [Concomitant]
  4. CARAFATE [Concomitant]
  5. DECADRON [Concomitant]
  6. AREDIA [Concomitant]
  7. PEPCID [Concomitant]

REACTIONS (6)
  - CONSTIPATION [None]
  - FATIGUE [None]
  - FLATULENCE [None]
  - HERPES VIRUS INFECTION [None]
  - MUSCLE SPASMS [None]
  - NEUROPATHY PERIPHERAL [None]
